FAERS Safety Report 5132576-3 (Version None)
Quarter: 2006Q4

REPORT INFORMATION
  Report Type: 
  Country: None (occurrence: None)
  Receive Date: 20061020
  Receipt Date: 20061020
  Transmission Date: 20070319
  Serious: Yes (Hospitalization)
  Sender: FDA-Public Use
  Company Number: None

PATIENT
  Age: 7 Month
  Sex: Male
  Weight: 5.5 kg

DRUGS (2)
  1. VIAGRA [Suspect]
     Indication: PULMONARY HYPERTENSION
     Dosage: 5.5MG  -1MG/KG/DOSE-   Q6HRS  PO
     Route: 048
     Dates: start: 20060819, end: 20060822
  2. VIAGRA [Suspect]
     Indication: PULMONARY HYPERTENSION
     Dosage: 5.5MG  -1MG/KG/DOSE-   Q6HRS  PO
     Route: 048
     Dates: start: 20060913, end: 20060925

REACTIONS (3)
  - BLOOD PRESSURE INCREASED [None]
  - CONVULSION [None]
  - HEART RATE DECREASED [None]
